FAERS Safety Report 7762009-X (Version None)
Quarter: 2011Q3

REPORT INFORMATION
  Report Type: 
  Country: None (occurrence: None)
  Receive Date: 20110920
  Receipt Date: 20110907
  Transmission Date: 20111222
  Serious: Yes (Hospitalization)
  Sender: FDA-Public Use
  Company Number: IL-ELI_LILLY_AND_COMPANY-IL201109002276

PATIENT
  Sex: Female
  Weight: 56 kg

DRUGS (8)
  1. ENBREL [Concomitant]
     Indication: RHEUMATOID ARTHRITIS
     Route: 058
  2. URSOLIT [Concomitant]
     Indication: CHOLANGITIS
  3. NORVASC [Concomitant]
     Indication: HYPERTENSION
  4. FORTEO [Suspect]
     Dosage: 20 UG, QD
     Route: 058
     Dates: start: 20110904
  5. FORTEO [Suspect]
     Indication: OSTEOPOROSIS
     Dosage: 20 UG, QD
     Route: 058
     Dates: start: 20110601, end: 20110601
  6. RAMIPRIL [Concomitant]
     Indication: HYPERTENSION
  7. ANALGESICS [Concomitant]
     Indication: PAIN
     Dosage: UNK, PRN
  8. NORMITEN [Concomitant]
     Indication: HYPERTENSION

REACTIONS (1)
  - NEUROSURGERY [None]
